FAERS Safety Report 6181482-4 (Version None)
Quarter: 2009Q2

REPORT INFORMATION
  Report Type: 
  Country: None (occurrence: None)
  Receive Date: 20090501
  Receipt Date: 20090415
  Transmission Date: 20091009
  Serious: Yes (Hospitalization)
  Sender: FDA-Public Use
  Company Number: 2009AL002208

PATIENT
  Age: 65 Year
  Sex: Female

DRUGS (2)
  1. METFORMIN HCL [Suspect]
     Indication: DIABETES MELLITUS
  2. SULFONYLUREA [Concomitant]

REACTIONS (11)
  - BLOOD GLUCOSE INCREASED [None]
  - BLOOD POTASSIUM INCREASED [None]
  - BLOOD UREA INCREASED [None]
  - CALCIUM IONISED INCREASED [None]
  - HYPOTENSION [None]
  - LACTIC ACIDOSIS [None]
  - NODAL RHYTHM [None]
  - PNEUMONITIS [None]
  - SINUS ARREST [None]
  - SYNCOPE [None]
  - WHITE BLOOD CELL COUNT INCREASED [None]
